FAERS Safety Report 7731693-9 (Version None)
Quarter: 2011Q3

REPORT INFORMATION
  Report Type: 
  Country: None (occurrence: None)
  Receive Date: 20110906
  Receipt Date: 20110623
  Transmission Date: 20111222
  Serious: No
  Sender: FDA-Public Use
  Company Number: US-AMGEN-USASP2011032175

PATIENT
  Sex: Female

DRUGS (10)
  1. SIMVASTATIN [Concomitant]
  2. XANAX [Concomitant]
  3. MULTIVITAMIN AND MINERAL [Concomitant]
  4. OMEGA 3                            /01334101/ [Concomitant]
  5. VITAMIN D                          /00318501/ [Concomitant]
  6. PROLIA [Suspect]
     Indication: OSTEOPOROSIS POSTMENOPAUSAL
     Dosage: 60 MG, Q6MO
     Dates: start: 20100924
  7. CALCIUM CARBONATE [Concomitant]
  8. METOPROLOL [Concomitant]
  9. PROTONIX [Concomitant]
  10. SYNTHROID [Concomitant]

REACTIONS (1)
  - PAIN IN JAW [None]
